FAERS Safety Report 8755876 (Version 5)
Quarter: 2013Q1

REPORT INFORMATION
  Report Type: Report from Study
  Country: BG (occurrence: BG)
  Receive Date: 20120828
  Receipt Date: 20130125
  Transmission Date: 20140127
  Serious: Yes (Hospitalization)
  Sender: FDA-Public Use
  Company Number: BG-ROCHE-1107358

PATIENT
  Age: 43 Year
  Sex: Female
  Weight: 51.5 kg

DRUGS (3)
  1. VEMURAFENIB [Suspect]
     Indication: MALIGNANT MELANOMA
     Route: 048
     Dates: start: 20120613, end: 20120727
  2. VEMURAFENIB [Suspect]
     Route: 048
     Dates: start: 20120727, end: 20120817
  3. VEMURAFENIB [Suspect]
     Route: 065
     Dates: start: 20120926

REACTIONS (1)
  - Hepatitis toxic [Recovered/Resolved]
